FAERS Safety Report 23684304 (Version 1)
Quarter: 2024Q1

REPORT INFORMATION
  Report Type: Spontaneous
  Country: US (occurrence: US)
  Receive Date: 20240328
  Receipt Date: 20240328
  Transmission Date: 20240409
  Serious: No
  Sender: FDA-Public Use
  Company Number: US-TEVA-VS-3165352

PATIENT
  Age: 74 Year
  Sex: Female

DRUGS (1)
  1. ALBUTEROL SULFATE [Suspect]
     Active Substance: ALBUTEROL SULFATE

REACTIONS (7)
  - Burning sensation [Unknown]
  - Influenza like illness [Unknown]
  - Nightmare [Unknown]
  - Cough [Unknown]
  - Nothing by mouth order [Unknown]
  - Intestinal mass [Unknown]
  - Adverse drug reaction [Unknown]
